FAERS Safety Report 12476078 (Version 3)
Quarter: 2016Q2

REPORT INFORMATION
  Report Type: Spontaneous
  Country: GB (occurrence: GB)
  Receive Date: 20160617
  Receipt Date: 20160628
  Transmission Date: 20160815
  Serious: Yes (Other)
  Sender: FDA-Public Use
  Company Number: GB-SA-2016SA111871

PATIENT
  Age: 70 Year
  Sex: Male

DRUGS (10)
  1. QUININE SULFATE. [Concomitant]
     Active Substance: QUININE SULFATE
  2. CLOPIDOGREL ZENTIVA [Suspect]
     Active Substance: CLOPIDOGREL BISULFATE
     Indication: VASCULAR GRAFT
     Route: 065
     Dates: start: 201407
  3. ASPIRIN. [Suspect]
     Active Substance: ASPIRIN
     Indication: VASCULAR GRAFT
     Route: 065
  4. BISOPROLOL [Interacting]
     Active Substance: BISOPROLOL
     Indication: VASCULAR GRAFT
     Route: 065
     Dates: start: 201407, end: 2015
  5. BISOPROLOL [Interacting]
     Active Substance: BISOPROLOL
     Indication: VASCULAR GRAFT
     Route: 065
  6. RAMIPRIL. [Interacting]
     Active Substance: RAMIPRIL
     Indication: VASCULAR GRAFT
     Dosage: START DATE-POSSIBLY AFTER MAR/APR 15
     Route: 065
     Dates: start: 2015, end: 2015
  7. DIFFUNDOX XL [Interacting]
     Active Substance: TAMSULOSIN HYDROCHLORIDE
     Indication: PROSTATOMEGALY
     Route: 065
     Dates: start: 201407
  8. LEVOTHYROXINE. [Suspect]
     Active Substance: LEVOTHYROXINE
     Indication: THYROID DISORDER
     Route: 065
     Dates: start: 201508
  9. SIMVASTATIN. [Concomitant]
     Active Substance: SIMVASTATIN
     Indication: BLOOD CHOLESTEROL
  10. QUININE [Concomitant]
     Active Substance: QUININE
     Indication: RESTLESS LEGS SYNDROME

REACTIONS (12)
  - Drug interaction [Unknown]
  - Dyspnoea [Not Recovered/Not Resolved]
  - Pain in extremity [Not Recovered/Not Resolved]
  - Musculoskeletal pain [Not Recovered/Not Resolved]
  - Activities of daily living impaired [Unknown]
  - Nasopharyngitis [Unknown]
  - Neck pain [Not Recovered/Not Resolved]
  - Chest pain [Not Recovered/Not Resolved]
  - Pain [Not Recovered/Not Resolved]
  - Chest discomfort [Not Recovered/Not Resolved]
  - Dizziness [Unknown]
  - Osteoarthritis [Unknown]

NARRATIVE: CASE EVENT DATE: 2014
